FAERS Safety Report 6508108-1 (Version None)
Quarter: 2009Q4

REPORT INFORMATION
  Report Type: 
  Country: None (occurrence: None)
  Receive Date: 20091221
  Receipt Date: 20091214
  Transmission Date: 20100525
  Serious: Yes (Hospitalization)
  Sender: FDA-Public Use
  Company Number: US-JNJFOC-20090908779

PATIENT
  Sex: Female
  Weight: 18.6 kg

DRUGS (15)
  1. TYLENOL (CAPLET) [Suspect]
  2. TYLENOL (CAPLET) [Suspect]
     Indication: PYREXIA
     Dosage: 1-2 TSP AS NEEDED
  3. CHILDREN'S TYLENOL LIQUID DYE-FREE CHERRY [Suspect]
     Route: 048
  4. CHILDREN'S TYLENOL LIQUID DYE-FREE CHERRY [Suspect]
     Indication: PYREXIA
     Dosage: UNSPECIFIED DOSE 2-3 TIMES DAILY AS NEEDED
     Route: 048
  5. TYLENOL [Suspect]
     Route: 048
  6. TYLENOL [Suspect]
     Indication: PYREXIA
     Dosage: UNSPECIFIED DOSE 2-3 TIMES DAILY AS NEEDED
     Route: 048
  7. REMICADE [Concomitant]
     Indication: CROHN'S DISEASE
     Route: 042
  8. PENTASA [Concomitant]
     Indication: CROHN'S DISEASE
  9. PREVACID [Concomitant]
     Indication: CROHN'S DISEASE
  10. PREVACID [Concomitant]
     Indication: GASTRIC DISORDER
  11. PROBIOTIC [Concomitant]
     Indication: GASTRIC DISORDER
  12. VITAMIN D [Concomitant]
     Indication: MEDICAL DIET
  13. FLOVENT [Concomitant]
     Indication: ASTHMA
     Route: 055
  14. CLARINEX [Concomitant]
     Indication: MULTIPLE ALLERGIES
  15. ALBUTEROL [Concomitant]
     Indication: ASTHMA

REACTIONS (5)
  - PNEUMONIA [None]
  - PYREXIA [None]
  - TRANSMISSION OF AN INFECTIOUS AGENT VIA A MEDICINAL PRODUCT [None]
  - UPPER RESPIRATORY TRACT INFECTION [None]
  - VIRAL INFECTION [None]
